FAERS Safety Report 15936420 (Version 7)
Quarter: 2019Q2

REPORT INFORMATION
  Report Type: Report from Study
  Country: None (occurrence: NL)
  Receive Date: 20190208
  Receipt Date: 20190417
  Transmission Date: 20190711
  Serious: Yes (Hospitalization)
  Sender: FDA-Public Use
  Company Number: NL-ABBVIE-19S-114-2653125-00

PATIENT
  Age: 71 Year
  Sex: Male
  Weight: 69.5 kg

DRUGS (10)
  1. CITALOPRAM [Concomitant]
     Active Substance: CITALOPRAM HYDROBROMIDE
     Indication: PARKINSON^S DISEASE
     Route: 048
  2. OMEPRAZOLE. [Concomitant]
     Active Substance: OMEPRAZOLE
     Indication: PARKINSON^S DISEASE
     Route: 048
  3. SINEMET CR [Concomitant]
     Active Substance: CARBIDOPA\LEVODOPA
     Indication: PARKINSON^S DISEASE
     Route: 048
  4. DUODOPA [Suspect]
     Active Substance: CARBIDOPA\LEVODOPA
     Indication: PARKINSON^S DISEASE
     Dosage: CD: 2.9 ML/HR
     Route: 050
     Dates: start: 20190121
  5. NEUPRO [Suspect]
     Active Substance: ROTIGOTINE
     Indication: PRODUCT USED FOR UNKNOWN INDICATION
     Route: 065
  6. RIVASTIGMINE. [Concomitant]
     Active Substance: RIVASTIGMINE
     Indication: PARKINSON^S DISEASE
     Route: 062
  7. SYMMETREL [Concomitant]
     Active Substance: AMANTADINE HYDROCHLORIDE
     Indication: PARKINSON^S DISEASE
     Route: 048
  8. ENALAPRIL [Concomitant]
     Active Substance: ENALAPRIL
     Indication: PARKINSON^S DISEASE
     Route: 048
  9. BUDESONIDE. [Concomitant]
     Active Substance: BUDESONIDE
     Indication: PARKINSON^S DISEASE
     Route: 048
  10. QUETIAPINE. [Concomitant]
     Active Substance: QUETIAPINE
     Indication: PARKINSON^S DISEASE
     Route: 048

REACTIONS (20)
  - Stoma site inflammation [Recovered/Resolved]
  - Stoma site odour [Not Recovered/Not Resolved]
  - Medical device site haematoma [Not Recovered/Not Resolved]
  - Stoma site pain [Not Recovered/Not Resolved]
  - Freezing phenomenon [Not Recovered/Not Resolved]
  - Pyrexia [Not Recovered/Not Resolved]
  - Breath odour [Not Recovered/Not Resolved]
  - Stoma site discharge [Recovered/Resolved]
  - Abdominal abscess [Not Recovered/Not Resolved]
  - Product administration error [Recovering/Resolving]
  - Stoma site infection [Recovering/Resolving]
  - Dyskinesia [Unknown]
  - Malaise [Not Recovered/Not Resolved]
  - Stoma site erythema [Recovered/Resolved]
  - Abdominal pain [Not Recovered/Not Resolved]
  - Anxiety [Not Recovered/Not Resolved]
  - Stoma site abscess [Recovered/Resolved]
  - Mood swings [Unknown]
  - Muscle spasms [Not Recovered/Not Resolved]
  - Stoma site induration [Unknown]

NARRATIVE: CASE EVENT DATE: 2019
